FAERS Safety Report 8093967-4 (Version None)
Quarter: 2012Q1

REPORT INFORMATION
  Report Type: 
  Country: None (occurrence: None)
  Receive Date: 20120130
  Receipt Date: 20120117
  Transmission Date: 20120608
  Serious: Yes (Hospitalization)
  Sender: FDA-Public Use
  Company Number: DE-UCBSA-023196

PATIENT
  Age: 53 Year
  Sex: Male
  Weight: 84 kg

DRUGS (5)
  1. VALPROATE SODIUM [Concomitant]
     Dosage: 1300 MG - 0 - 1000 MG
     Route: 048
     Dates: start: 20100101
  2. VIMPAT [Suspect]
     Indication: EPILEPSY
     Route: 048
     Dates: start: 20101011, end: 20101129
  3. VALPROATE SODIUM [Concomitant]
     Dosage: DOSE INCREASED
  4. VALPROATE SODIUM [Concomitant]
     Route: 048
     Dates: start: 20110203
  5. VALPROATE SODIUM [Concomitant]
     Indication: EPILEPSY
     Route: 048
     Dates: start: 20070101, end: 20100101

REACTIONS (2)
  - ATRIOVENTRICULAR BLOCK SECOND DEGREE [None]
  - ARRHYTHMIA [None]
